FAERS Safety Report 8115163-4 (Version None)
Quarter: 2012Q1

REPORT INFORMATION
  Report Type: 
  Country: None (occurrence: None)
  Receive Date: 20120206
  Receipt Date: 20120201
  Transmission Date: 20120608
  Serious: Yes (Hospitalization, Congenital Anomaly, Other)
  Sender: FDA-Public Use
  Company Number: US-PFIZER INC-2011158620

PATIENT
  Sex: Female
  Weight: 2 kg

DRUGS (9)
  1. AZITHROMYCIN [Concomitant]
     Dosage: 500 MG,
     Route: 064
     Dates: start: 20090531
  2. EFFEXOR XR [Suspect]
     Dosage: 300 MG PER DAY
     Route: 064
     Dates: start: 20090702
  3. MULTI-VITAMINS [Concomitant]
     Dosage: ONCE DAILY
     Route: 064
     Dates: start: 20090702
  4. EFFEXOR XR [Suspect]
     Indication: DEPRESSION
     Dosage: 75 MG
     Route: 064
     Dates: start: 20031219
  5. EFFEXOR XR [Suspect]
     Dosage: 150 MG,
     Route: 064
     Dates: start: 20040409
  6. LORATADINE [Concomitant]
     Dosage: 10 MG,
     Route: 064
     Dates: start: 20090531
  7. BENZONATATE [Concomitant]
     Dosage: 100 MG,
     Route: 064
     Dates: start: 20090531
  8. FERROUS SULFATE [Concomitant]
     Dosage: 325 MG,
     Route: 064
     Dates: start: 20090531
  9. BRETHINE [Concomitant]
     Dosage: 2.5 MG, 4X/DAY
     Route: 064
     Dates: start: 20090531, end: 20090702

REACTIONS (3)
  - MATERNAL EXPOSURE TIMING UNSPECIFIED [None]
  - ATRIAL SEPTAL DEFECT [None]
  - FALLOT'S TETRALOGY [None]
